FAERS Safety Report 9833476 (Version 1)
Quarter: 2014Q1

REPORT INFORMATION
  Report Type: Spontaneous
  Country: US (occurrence: US)
  Receive Date: 20140122
  Receipt Date: 20140122
  Transmission Date: 20141002
  Serious: Yes (Death, Hospitalization)
  Sender: FDA-Public Use
  Company Number: 2014SP000182

PATIENT
  Age: 69 Year
  Sex: Male

DRUGS (23)
  1. VANCOMYCIN [Suspect]
     Indication: PNEUMONIA
     Dates: start: 20131128, end: 20131202
  2. ZOSYN [Suspect]
     Indication: PNEUMONIA
     Dates: start: 20131128, end: 20131203
  3. AMOXICILLIN W/CLAVULANATE POTASSIUM [Concomitant]
     Indication: PRODUCT USED FOR UNKNOWN INDICATION
     Dates: start: 20131130
  4. ALLOPURINOL [Concomitant]
     Dates: start: 2008
  5. ASCORBIC ACID [Concomitant]
     Dates: start: 2012
  6. CALCIUM CHLORIDE [Concomitant]
     Dates: start: 2011
  7. VITAMIN D3 [Concomitant]
     Dates: start: 2011
  8. CLOPIDOGREL BISULFATE [Concomitant]
     Dates: start: 201309
  9. CYANOCOBALAMIN [Concomitant]
     Dates: start: 2011
  10. LINSEED OIL [Concomitant]
     Dates: start: 201309
  11. CAMELLIA SINENSIS [Concomitant]
     Dates: start: 2010
  12. OMEGA-3 TRIGLYCERIDES [Concomitant]
     Dates: start: 2010
  13. OMEPRAZOLE [Concomitant]
     Dates: start: 2008
  14. OXYCODONE [Concomitant]
     Dates: start: 201309
  15. RETINOL [Concomitant]
     Dates: start: 2012
  16. TERAZOSIN HYDROCHLORIDE [Concomitant]
     Dates: start: 2006
  17. SENNA FRUIT [Concomitant]
  18. SENNA /00571902/ [Concomitant]
     Dates: start: 20131119, end: 20131127
  19. MACROGOL [Concomitant]
     Dates: start: 20131120, end: 20131129
  20. DOCUSATE SODIUM [Concomitant]
     Dates: start: 20131125, end: 20131127
  21. TRIAMCINOLONE [Concomitant]
     Dates: start: 20131126, end: 20131203
  22. LACTULOSE [Concomitant]
     Dates: start: 20131126, end: 20131127
  23. MAGNESIUM CITRATE [Concomitant]
     Dates: start: 20131126, end: 20131127

REACTIONS (8)
  - Embolic stroke [Fatal]
  - Mental status changes [Not Recovered/Not Resolved]
  - Hemiplegia [Not Recovered/Not Resolved]
  - Haemolysis [Not Recovered/Not Resolved]
  - Thrombocytopenia [Not Recovered/Not Resolved]
  - Atrial fibrillation [Not Recovered/Not Resolved]
  - Palpitations [Unknown]
  - Tachypnoea [Unknown]
